FAERS Safety Report 6412609-4 (Version None)
Quarter: 2009Q4

REPORT INFORMATION
  Report Type: 
  Country: None (occurrence: None)
  Receive Date: 20091023
  Receipt Date: 20091012
  Transmission Date: 20100525
  Serious: Yes (Other)
  Sender: FDA-Public Use
  Company Number: PHHY2009DE35658

PATIENT
  Sex: Female
  Weight: 70 kg

DRUGS (2)
  1. ACLASTA [Suspect]
     Dosage: 5 MG, UNK
     Dates: start: 20090722
  2. REWODINA [Concomitant]
     Indication: OSTEOARTHRITIS
     Dosage: 150 MG, UNK
     Route: 048

REACTIONS (3)
  - CHILLS [None]
  - NAUSEA [None]
  - URINARY RETENTION [None]
